FAERS Safety Report 4820457-1 (Version None)
Quarter: 2005Q4

REPORT INFORMATION
  Report Type: 
  Country: None (occurrence: None)
  Receive Date: 20051104
  Receipt Date: 20051026
  Transmission Date: 20060501
  Serious: Yes (Death, Other)
  Sender: FDA-Public Use
  Company Number: KR-ABBOTT-05P-090-0315393-00

PATIENT
  Age: 52 Year
  Sex: Female

DRUGS (2)
  1. SEVORANE LIQUID FOR INHALATION [Suspect]
     Indication: PLASTIC SURGERY
     Dates: start: 20051005
  2. MUSCLE RELAXANT [Suspect]
     Indication: PLASTIC SURGERY
     Dates: start: 20051005

REACTIONS (2)
  - HYPOXIA [None]
  - NERVOUS SYSTEM DISORDER [None]
